FAERS Safety Report 17793738 (Version 3)
Quarter: 2020Q2

REPORT INFORMATION
  Report Type: Spontaneous
  Country: PT (occurrence: PT)
  Receive Date: 20200515
  Receipt Date: 20200522
  Transmission Date: 20200714
  Serious: Yes (Hospitalization, Other)
  Sender: FDA-Public Use
  Company Number: PT-ALLERGAN-2019489US

PATIENT
  Sex: Male

DRUGS (6)
  1. MEMANTINE HCL - BP [Suspect]
     Active Substance: MEMANTINE
     Indication: PRODUCT USED FOR UNKNOWN INDICATION
     Route: 065
  2. DARIFENACIN HYDROBROMIDE. [Suspect]
     Active Substance: DARIFENACIN HYDROBROMIDE
     Indication: PRODUCT USED FOR UNKNOWN INDICATION
     Dosage: 7.5 MG
     Dates: start: 201603
  3. DONEPEZIL. [Concomitant]
     Active Substance: DONEPEZIL
     Indication: PRODUCT USED FOR UNKNOWN INDICATION
     Dosage: UNK
  4. ESCITALOPRAM OXALATE - BP [Suspect]
     Active Substance: ESCITALOPRAM OXALATE
     Indication: ANXIETY DISORDER
     Dosage: 10 MG, QD
     Route: 065
  5. ENRICHED OMEGA-3 FATTY ACIDS [Concomitant]
     Indication: PRODUCT USED FOR UNKNOWN INDICATION
     Dosage: UNK
     Dates: start: 201605
  6. ALFUZOSIN [Suspect]
     Active Substance: ALFUZOSIN
     Indication: PRODUCT USED FOR UNKNOWN INDICATION
     Dosage: 10 MG

REACTIONS (18)
  - Ketonuria [Recovered/Resolved]
  - Hydronephrosis [Unknown]
  - Pollakiuria [Unknown]
  - Therapeutic response decreased [Unknown]
  - Acute kidney injury [Recovered/Resolved]
  - Hyperphagia [Recovered/Resolved]
  - Delirium [Recovered/Resolved]
  - Pollakiuria [Recovered/Resolved]
  - Pollakiuria [Unknown]
  - Urinary incontinence [Unknown]
  - Proteinuria [Recovered/Resolved]
  - Hyperglycaemic hyperosmolar nonketotic syndrome [Recovered/Resolved]
  - Hypernatraemia [Recovered/Resolved]
  - Polydipsia [Recovered/Resolved]
  - Gastrointestinal disorder [Unknown]
  - Weight decreased [Recovered/Resolved]
  - Dry mouth [Unknown]
  - Prostatomegaly [Unknown]

NARRATIVE: CASE EVENT DATE: 20151123
